FAERS Safety Report 11146857 (Version 1)
Quarter: 2015Q2

REPORT INFORMATION
  Report Type: Spontaneous
  Country: FR (occurrence: FR)
  Receive Date: 20150528
  Receipt Date: 20150528
  Transmission Date: 20150821
  Serious: Yes (Other)
  Sender: FDA-Public Use
  Company Number: FR-PFIZER INC-2015169594

PATIENT
  Age: 61 Year
  Sex: Male

DRUGS (1)
  1. ZOXAN [Suspect]
     Active Substance: DOXAZOSIN MESYLATE
     Dosage: 8 MG, DAILY

REACTIONS (1)
  - Retinal detachment [Unknown]
